FAERS Safety Report 12450462 (Version 1)
Quarter: 2016Q2

REPORT INFORMATION
  Report Type: Spontaneous
  Country: IT (occurrence: IT)
  Receive Date: 20160609
  Receipt Date: 20160609
  Transmission Date: 20160815
  Serious: Yes (Other)
  Sender: FDA-Public Use
  Company Number: IT-009507513-1606ITA003776

PATIENT
  Sex: Male

DRUGS (3)
  1. PEGINTERFERON ALFA-2A [Suspect]
     Active Substance: PEGINTERFERON ALFA-2A
     Indication: HEPATITIS C
     Dosage: 180 MICROGRAM/WEEK FOR 48 WEEKS IN GENOTYPE 1 OR 4, + FOR 24 WEEKS IN GENOTYPE 2 OR 3
  2. RIBAVIRIN. [Suspect]
     Active Substance: RIBAVIRIN
     Indication: HEPATITIS C
     Dosage: 15 MG/KG/DAY FOR 48 WEEKS IN GENOTYPE 1 OR 4, + FOR 24 WEEKS IN GENOTYPE 2 OR 3
  3. PEGINTERFERON ALFA-2B [Suspect]
     Active Substance: PEGINTERFERON ALFA-2B
     Indication: HEPATITIS C
     Dosage: 1.5 MICROGRAM PER KILOGRAM/WEEK FOR 48 WEEKS IN GENOTYPE 1 OR 4, + FOR 24 WEEKS IN GENOTYPE 2 OR 3

REACTIONS (1)
  - Hepatitis [Unknown]
